FAERS Safety Report 5822064-0 (Version None)
Quarter: 2008Q3

REPORT INFORMATION
  Report Type: 
  Country: None (occurrence: None)
  Receive Date: 20080722
  Receipt Date: 20080722
  Transmission Date: 20090109
  Serious: Yes (Hospitalization)
  Sender: FDA-Public Use
  Company Number: None

PATIENT
  Sex: Male
  Weight: 90.5 kg

DRUGS (4)
  1. FLUOROURACIL [Suspect]
     Dosage: 0 MG
  2. ERBITUX [Suspect]
     Dosage: 543 MG
  3. LEUCOVORIN CALCIUM [Suspect]
     Dosage: 868 MG
  4. OXALIPLATIN [Suspect]
     Dosage: 184 MG

REACTIONS (2)
  - DISEASE PROGRESSION [None]
  - DYSPNOEA [None]
